FAERS Safety Report 9046493 (Version 1)
Quarter: 2013Q1

REPORT INFORMATION
  Report Type: Spontaneous
  Country: US (occurrence: None)
  Receive Date: 20130128
  Receipt Date: 20130128
  Transmission Date: 20140127
  Serious: Yes (Disabling)
  Sender: FDA-Public Use
  Company Number: None

PATIENT
  Age: 41 Year
  Sex: Female
  Weight: 77.11 kg

DRUGS (3)
  1. MAGNEVIST [Suspect]
     Indication: FATIGUE
     Route: 042
     Dates: start: 20120217, end: 20120217
  2. MAGNEVIST [Suspect]
     Indication: HYPOAESTHESIA
     Route: 042
     Dates: start: 20120217, end: 20120217
  3. MAGNEVIST [Suspect]
     Route: 042
     Dates: start: 20120217, end: 20120217

REACTIONS (5)
  - Local swelling [None]
  - Pain in extremity [None]
  - Pruritus [None]
  - Arthropathy [None]
  - Arthralgia [None]
